FAERS Safety Report 10146178 (Version 2)
Quarter: 2014Q2

REPORT INFORMATION
  Report Type: Spontaneous
  Country: OM (occurrence: OM)
  Receive Date: 20140501
  Receipt Date: 20140528
  Transmission Date: 20141212
  Serious: Yes (Hospitalization)
  Sender: FDA-Public Use
  Company Number: OM-NOVOPROD-408460

PATIENT
  Age: 34 Year
  Sex: Female
  Weight: 107 kg

DRUGS (4)
  1. VICTOZA [Suspect]
     Indication: PRODUCT USED FOR UNKNOWN INDICATION
     Dosage: 0.6 MG, QD
     Route: 058
     Dates: start: 20140411, end: 20140417
  2. VICTOZA [Suspect]
     Dosage: 0.6 MG, QD
     Route: 058
  3. LANTUS [Concomitant]
     Dosage: UNK
     Route: 065
  4. WARFARIN [Concomitant]
     Indication: PULMONARY EMBOLISM
     Dosage: UNK
     Route: 065

REACTIONS (1)
  - Haemoglobin decreased [Recovered/Resolved]
